FAERS Safety Report 18460358 (Version 2)
Quarter: 2020Q4

REPORT INFORMATION
  Report Type: Report from Study
  Country: None (occurrence: CA)
  Receive Date: 20201103
  Receipt Date: 20201110
  Transmission Date: 20210114
  Serious: Yes (Hospitalization, Other)
  Sender: FDA-Public Use
  Company Number: CA-ABBVIE-20K-028-3603267-00

PATIENT
  Age: 35 Year
  Sex: Female
  Weight: 58 kg

DRUGS (2)
  1. HUMIRA [Suspect]
     Active Substance: ADALIMUMAB
     Indication: ANKYLOSING SPONDYLITIS
     Route: 058
     Dates: start: 20190706, end: 202001
  2. HUMIRA [Suspect]
     Active Substance: ADALIMUMAB
     Route: 058
     Dates: start: 202001, end: 20201001

REACTIONS (13)
  - Abortion spontaneous [Unknown]
  - Dysuria [Unknown]
  - Pain [Not Recovered/Not Resolved]
  - Maternal exposure during pregnancy [Unknown]
  - Staphylococcal infection [Unknown]
  - Haemorrhage [Unknown]
  - Chills [Unknown]
  - Drug ineffective [Unknown]
  - Off label use [Unknown]
  - Urinary tract infection [Recovered/Resolved]
  - Unevaluable event [Not Recovered/Not Resolved]
  - Abortion infected [Unknown]
  - Malaise [Unknown]

NARRATIVE: CASE EVENT DATE: 202010
